FAERS Safety Report 6731702-X (Version None)
Quarter: 2010Q2

REPORT INFORMATION
  Report Type: 
  Country: None (occurrence: None)
  Receive Date: 20100518
  Receipt Date: 20100518
  Transmission Date: 20101027
  Serious: Yes (Other)
  Sender: FDA-Public Use
  Company Number: None

PATIENT
  Age: 76 Year
  Sex: Male

DRUGS (1)
  1. WARFARIN SODIUM [Suspect]
     Indication: ATRIAL FIBRILLATION
     Dosage: 4 MG ONCE PO
     Route: 048
     Dates: start: 20100111, end: 20100122

REACTIONS (3)
  - ECCHYMOSIS [None]
  - FLANK PAIN [None]
  - HAEMATOMA [None]
